FAERS Safety Report 16745846 (Version 1)
Quarter: 2019Q4

REPORT INFORMATION
  Report Type: Spontaneous
  Country: US (occurrence: US)
  Receive Date: 20190827
  Receipt Date: 20190827
  Transmission Date: 20200122
  Serious: Yes (Congenital Anomaly)
  Sender: FDA-Public Use
  Company Number: None

PATIENT
  Age: 32 Year
  Sex: Female

DRUGS (6)
  1. SINGULAIR [Suspect]
     Active Substance: MONTELUKAST SODIUM
     Indication: ASTHMA
  2. SINGULAIR [Suspect]
     Active Substance: MONTELUKAST SODIUM
     Indication: RHINITIS ALLERGIC
  3. ALLEGRA [Concomitant]
     Active Substance: FEXOFENADINE HYDROCHLORIDE
  4. SINGULAIR [Suspect]
     Active Substance: MONTELUKAST SODIUM
     Indication: CONJUNCTIVITIS
  5. SINGULAIR [Concomitant]
     Active Substance: MONTELUKAST SODIUM
  6. IRON SUPPLEMENTS [Concomitant]
     Active Substance: IRON

REACTIONS (1)
  - Exposure during pregnancy [None]
